FAERS Safety Report 6990149-1 (Version None)
Quarter: 2010Q3

REPORT INFORMATION
  Report Type: 
  Country: None (occurrence: None)
  Receive Date: 20100916
  Receipt Date: 20100430
  Transmission Date: 20110219
  Serious: Yes (Other)
  Sender: FDA-Public Use
  Company Number: BR-PFIZER INC-2010054712

PATIENT
  Sex: Female
  Weight: 69 kg

DRUGS (4)
  1. LYRICA [Suspect]
     Indication: MUSCULOSKELETAL CHEST PAIN
     Dosage: UNK
     Route: 048
     Dates: start: 20100429, end: 20100101
  2. LYRICA [Suspect]
     Indication: HERPES VIRUS INFECTION
  3. ALENDRONATE SODIUM [Concomitant]
     Indication: OSTEOPOROSIS
     Dosage: UNK
  4. ATENOLOL [Concomitant]
     Dosage: UNK

REACTIONS (4)
  - DIZZINESS [None]
  - LABYRINTHITIS [None]
  - SEDATION [None]
  - SOMNOLENCE [None]
